FAERS Safety Report 22021915 (Version 1)
Quarter: 2023Q1

REPORT INFORMATION
  Report Type: Spontaneous
  Country: US (occurrence: None)
  Receive Date: 20230218
  Receipt Date: 20230218
  Transmission Date: 20230418
  Serious: Yes (Other)
  Sender: FDA-Public Use
  Company Number: None

PATIENT
  Age: 75 Year
  Sex: Female
  Weight: 83.7 kg

DRUGS (2)
  1. REXULTI [Suspect]
     Active Substance: BREXPIPRAZOLE
     Indication: Adjuvant therapy
     Dosage: OTHER QUANTITY : 14 TABLET(S);?FREQUENCY : AT BEDTIME;?
     Route: 048
  2. REXULTI [Suspect]
     Active Substance: BREXPIPRAZOLE
     Indication: Antidepressant therapy

REACTIONS (7)
  - Restlessness [None]
  - Insomnia [None]
  - Palpitations [None]
  - Binge eating [None]
  - Mania [None]
  - Speech disorder [None]
  - Extra dose administered [None]

NARRATIVE: CASE EVENT DATE: 20230216
